FAERS Safety Report 20256111 (Version 2)
Quarter: 2022Q1

REPORT INFORMATION
  Report Type: Other
  Country: US (occurrence: None)
  Receive Date: 20211230
  Receipt Date: 20220204
  Transmission Date: 20220423
  Serious: No
  Sender: FDA-Public Use
  Company Number: US-ROCHE-2986982

PATIENT
  Age: 47 Year
  Sex: Female
  Weight: 129.39 kg

DRUGS (11)
  1. OCREVUS [Suspect]
     Active Substance: OCRELIZUMAB
     Indication: Relapsing-remitting multiple sclerosis
     Dosage: LAST DATE OF TREATMENT: 06/MAY/2020, ANTICIPATED DATE OF TREATMENT: 04/NOV/2020
     Route: 042
     Dates: start: 20190402
  2. OCREVUS [Suspect]
     Active Substance: OCRELIZUMAB
     Dosage: 2 HALF DOSES
     Route: 042
     Dates: start: 2019
  3. CLONAZEPAM [Suspect]
     Active Substance: CLONAZEPAM
     Indication: Product used for unknown indication
     Route: 065
  4. DULOXETINE [Concomitant]
     Active Substance: DULOXETINE
     Indication: Back pain
     Dosage: STARTED PROBABLY 10 YEARS AGO
     Route: 048
  5. DULOXETINE [Concomitant]
     Active Substance: DULOXETINE
     Indication: Depression
  6. TIZANIDINE [Concomitant]
     Active Substance: TIZANIDINE
     Indication: Muscle spasms
     Dosage: STARTED ABOUT 10 YEARS AGO
     Route: 048
  7. LYRICA [Concomitant]
     Active Substance: PREGABALIN
     Indication: Muscle spasms
     Dosage: STARTED ABOUT 4 YEARS AGO
     Route: 048
  8. LYRICA [Concomitant]
     Active Substance: PREGABALIN
     Indication: Multiple sclerosis
  9. LINZESS [Concomitant]
     Active Substance: LINACLOTIDE
     Indication: Constipation
     Dosage: STARTED MAYBE 8 YEARS AGO
     Route: 048
  10. PFIZER-BIONTECH COVID-19 VACCINE [Concomitant]
     Active Substance: TOZINAMERAN
     Indication: Product used for unknown indication
     Dosage: NO BOOSTER 2 SHOTS
     Dates: start: 202106, end: 20210713
  11. ADDERALL [Concomitant]
     Active Substance: AMPHETAMINE ASPARTATE\AMPHETAMINE SULFATE\DEXTROAMPHETAMINE SACCHARATE\DEXTROAMPHETAMINE SULFATE
     Indication: Weight decreased
     Dosage: STARTED ABOUT 10 YEARS AGO
     Route: 048

REACTIONS (3)
  - COVID-19 [Recovered/Resolved]
  - Drug hypersensitivity [Unknown]
  - Bed bug infestation [Unknown]

NARRATIVE: CASE EVENT DATE: 20211201
